FAERS Safety Report 20786674 (Version 2)
Quarter: 2022Q3

REPORT INFORMATION
  Report Type: Other
  Country: BR (occurrence: BR)
  Receive Date: 20220505
  Receipt Date: 20220722
  Transmission Date: 20221027
  Serious: No
  Sender: FDA-Public Use
  Company Number: BR-TOLMAR, INC.-22BR032897

PATIENT
  Age: 75 Year
  Sex: Male

DRUGS (7)
  1. ELIGARD [Suspect]
     Active Substance: LEUPROLIDE ACETATE
     Indication: Prostate cancer
     Dosage: 22.5 MILLIGRAM, Q 3 MONTH
     Dates: start: 20220126
  2. ELIGARD [Suspect]
     Active Substance: LEUPROLIDE ACETATE
     Dosage: 22.5 MILLIGRAM, Q 3 MONTH
     Dates: start: 20210804
  3. PREDNISONE [Concomitant]
     Active Substance: PREDNISONE
  4. ALLOPURINOL [Concomitant]
     Active Substance: ALLOPURINOL
  5. AMLODIPINE BESYLATE [Concomitant]
     Active Substance: AMLODIPINE BESYLATE
  6. TAMSULOSIN [Concomitant]
     Active Substance: TAMSULOSIN
  7. CANDESARTAN CILEXETIL\HYDROCHLOROTHIAZIDE [Concomitant]
     Active Substance: CANDESARTAN CILEXETIL\HYDROCHLOROTHIAZIDE

REACTIONS (2)
  - Product administration error [Unknown]
  - Syringe issue [Unknown]

NARRATIVE: CASE EVENT DATE: 20220126
